FAERS Safety Report 15832670 (Version 1)
Quarter: 2019Q1

REPORT INFORMATION
  Report Type: Other
  Country: CN (occurrence: CN)
  Receive Date: 20190116
  Receipt Date: 20190116
  Transmission Date: 20190417
  Serious: Yes (Hospitalization, Other)
  Sender: FDA-Public Use
  Company Number: CN-APOTEX-2019AP005278

PATIENT

DRUGS (7)
  1. SEROXAT [Suspect]
     Active Substance: PAROXETINE HYDROCHLORIDE
     Indication: ANXIETY DISORDER
     Dosage: 20 MG, QD
     Route: 048
  2. SEROXAT [Suspect]
     Active Substance: PAROXETINE HYDROCHLORIDE
     Dosage: 1 DF, QD(TABLET)
     Route: 048
     Dates: start: 20180810, end: 20180831
  3. AROTINOLOL HYDROCHLORIDE TABLETS TABLET [Suspect]
     Active Substance: AROTINOLOL HYDROCHLORIDE
     Indication: BLOOD PRESSURE INCREASED
     Dosage: 5 MG, UNK
     Route: 048
  4. MIRTAZAPINE TABLETS [Concomitant]
     Active Substance: MIRTAZAPINE
     Indication: PRODUCT USED FOR UNKNOWN INDICATION
     Dosage: UNK UNK, QD
     Route: 065
  5. SEROXAT [Suspect]
     Active Substance: PAROXETINE HYDROCHLORIDE
     Dosage: 2 DF, QD(TABLET)
     Route: 048
     Dates: start: 20180820
  6. LEYOU TABLET [Concomitant]
     Indication: ANXIETY DISORDER
     Dosage: UNK
     Route: 048
  7. ACERTIL (PERINDOPRIL) [Suspect]
     Active Substance: PERINDOPRIL ERBUMINE
     Indication: LABILE BLOOD PRESSURE
     Dosage: UNK
     Route: 048
     Dates: start: 20180828

REACTIONS (16)
  - Product use in unapproved indication [Unknown]
  - Ill-defined disorder [Unknown]
  - Disease recurrence [Unknown]
  - Tremor [Recovered/Resolved]
  - Dizziness [Recovering/Resolving]
  - Headache [Recovering/Resolving]
  - Abdominal distension [Recovered/Resolved]
  - Inappropriate schedule of product administration [Unknown]
  - Primary hyperaldosteronism [Recovering/Resolving]
  - Blood pressure increased [Recovering/Resolving]
  - Cranial nerve injury [Recovering/Resolving]
  - Abdominal pain upper [Recovering/Resolving]
  - Discomfort [Recovering/Resolving]
  - Labile blood pressure [Recovering/Resolving]
  - Panic attack [Recovering/Resolving]
  - Anxiety [Recovering/Resolving]

NARRATIVE: CASE EVENT DATE: 20180810
